FAERS Safety Report 19492930 (Version 1)
Quarter: 2021Q3

REPORT INFORMATION
  Report Type: Spontaneous
  Country: US (occurrence: US)
  Receive Date: 20210705
  Receipt Date: 20210705
  Transmission Date: 20211014
  Serious: No
  Sender: FDA-Public Use
  Company Number: US-TAKEDA-2021TUS040142

PATIENT
  Age: 65 Year
  Sex: Male
  Weight: 94.88 kg

DRUGS (3)
  1. ARANESP [Concomitant]
     Active Substance: DARBEPOETIN ALFA
     Dosage: UNK
  2. VELCADE [Suspect]
     Active Substance: BORTEZOMIB
     Indication: PLASMA CELL MYELOMA
     Dosage: 2.8 MILLIGRAM
     Route: 058
     Dates: start: 20190102, end: 20210512
  3. DARZALEX [Concomitant]
     Active Substance: DARATUMUMAB
     Dosage: UNK

REACTIONS (2)
  - No adverse event [Unknown]
  - Product dose omission issue [Unknown]

NARRATIVE: CASE EVENT DATE: 20210609
